FAERS Safety Report 9225393 (Version 1)
Quarter: 2013Q2

REPORT INFORMATION
  Report Type: Report from Study
  Country: JP (occurrence: JP)
  Receive Date: 20130411
  Receipt Date: 20130411
  Transmission Date: 20140414
  Serious: Yes (Death)
  Sender: FDA-Public Use
  Company Number: JP-009507513-1304JPN004449

PATIENT
  Age: 85 Year
  Sex: Male
  Weight: 47 kg

DRUGS (12)
  1. TEMODAL [Suspect]
     Indication: GLIOBLASTOMA MULTIFORME
     Dosage: 75 MG/SQM
     Route: 042
     Dates: start: 20121025, end: 20121116
  2. TEMODAL [Suspect]
     Indication: GLIOBLASTOMA MULTIFORME
     Dosage: UNK
     Route: 048
     Dates: start: 20121117, end: 2012
  3. GRANISETRON [Concomitant]
     Indication: PROPHYLAXIS
     Dosage: UNK
     Route: 042
     Dates: start: 20121025, end: 20121116
  4. NORVASC [Concomitant]
     Dosage: UNK
     Route: 048
     Dates: start: 20121030, end: 20121128
  5. FAMOTIDINE D [Concomitant]
     Dosage: UNK
     Route: 048
     Dates: start: 20121030, end: 20121129
  6. MUCODYNE [Concomitant]
     Dosage: UNK
     Route: 048
     Dates: start: 20121029, end: 20121128
  7. RINDERON (BETAMETHASONE) [Concomitant]
     Dosage: UNK
     Route: 048
     Dates: start: 20121025, end: 20121128
  8. MIYA BM [Concomitant]
     Dosage: UNK
     Route: 048
     Dates: start: 20121027, end: 20121128
  9. CEREB [Concomitant]
     Dosage: UNK
     Route: 048
     Dates: start: 20121102, end: 20121128
  10. SINSERON [Concomitant]
     Indication: PROPHYLAXIS
     Dosage: UNK
     Route: 048
     Dates: start: 20121117, end: 20121128
  11. CLINDAMYCIN [Concomitant]
     Indication: PNEUMONIA ASPIRATION
     Dosage: UNK
     Route: 042
     Dates: start: 20121129, end: 20121211
  12. MINOCYCLINE HYDROCHLORIDE [Concomitant]
     Indication: PNEUMONIA ASPIRATION
     Dosage: UNK
     Dates: start: 20121129, end: 20121211

REACTIONS (3)
  - Pneumonia [Fatal]
  - Lymphocyte count decreased [Recovered/Resolved]
  - Platelet count decreased [Recovered/Resolved]
